FAERS Safety Report 9682213 (Version 1)
Quarter: 2013Q4

REPORT INFORMATION
  Report Type: Report from Study
  Country: NL (occurrence: NL)
  Receive Date: 20131111
  Receipt Date: 20131111
  Transmission Date: 20140711
  Serious: Yes (Hospitalization)
  Sender: FDA-Public Use
  Company Number: NL-TEVA-442974ISR

PATIENT
  Age: 65 Year
  Sex: Female

DRUGS (6)
  1. MYOCET [Suspect]
  2. PACLITAXEL [Suspect]
     Indication: BREAST CANCER METASTATIC
     Dosage: 150 MILLIGRAM DAILY;
     Route: 042
     Dates: start: 20130604, end: 20130909
  3. AVASTIN [Suspect]
     Indication: BREAST CANCER METASTATIC
     Dosage: 600 MILLIGRAM DAILY;
     Route: 042
     Dates: start: 20130604, end: 20130909
  4. NOVOMIX [Concomitant]
     Dates: start: 20130228
  5. TOLBUTAMIDE [Concomitant]
     Dates: start: 20130221
  6. METOPROLOL [Concomitant]
     Dates: start: 20110101

REACTIONS (5)
  - Inappropriate antidiuretic hormone secretion [Recovered/Resolved]
  - Vomiting [Recovered/Resolved]
  - Dehydration [Recovered/Resolved]
  - Nausea [Recovered/Resolved]
  - Hyponatraemia [Recovered/Resolved]
